FAERS Safety Report 4845944-1 (Version None)
Quarter: 2005Q4

REPORT INFORMATION
  Report Type: 
  Country: None (occurrence: None)
  Receive Date: 20051130
  Receipt Date: 20051116
  Transmission Date: 20060501
  Serious: Yes (Death)
  Sender: FDA-Public Use
  Company Number: B0400728A

PATIENT
  Age: 48 Year
  Sex: Male

DRUGS (10)
  1. ALKERAN [Suspect]
     Dosage: UNKNOWN
     Route: 065
  2. PREDNISONE [Suspect]
     Dosage: UNKNOWN
     Route: 065
  3. VINCRISTINE [Suspect]
     Dosage: UNKNOWN
     Route: 065
  4. DOXORUBICIN HYDROCHLORIDE [Suspect]
     Dosage: UNKNOWN
     Route: 065
  5. DEXAMETHASONE [Suspect]
     Dosage: UNKNOWN
     Route: 065
  6. THALOMID [Suspect]
     Dosage: 400 MG PER DAY / UNKNOWN
     Route: 065
  7. CYCLOPHOSPHAMIDE [Suspect]
     Dosage: UNKNOWN
     Route: 065
  8. DOXORUBICIN HYDROCHLORIDE [Suspect]
     Dosage: UNKNOWN
     Route: 065
  9. VINCRISTINE [Suspect]
     Dosage: UNKNOWN
     Route: 065
  10. METHYLPREDNISOLONE [Suspect]
     Dosage: UNKNOWN
     Route: 065

REACTIONS (8)
  - BACTERIAL SEPSIS [None]
  - CARDIAC ARREST [None]
  - CHROMOSOMAL DELETION [None]
  - CHROMOSOME ABNORMALITY [None]
  - LEUKAEMIA PLASMACYTIC [None]
  - PLASMACYTOMA [None]
  - SKIN NODULE [None]
  - TRISOMY 18 [None]
